FAERS Safety Report 12956688 (Version 7)
Quarter: 2018Q2

REPORT INFORMATION
  Report Type: Report from Study
  Country: US (occurrence: US)
  Receive Date: 20161118
  Receipt Date: 20180425
  Transmission Date: 20180711
  Serious: Yes (Other)
  Sender: FDA-Public Use
  Company Number: US-ASTELLAS-2016US035757

PATIENT
  Age: 73 Year
  Sex: Male

DRUGS (3)
  1. ENZALUTAMIDE [Suspect]
     Active Substance: ENZALUTAMIDE
     Indication: HORMONE-REFRACTORY PROSTATE CANCER
     Route: 048
     Dates: start: 20160802
  2. GABAPENTIN. [Concomitant]
     Active Substance: GABAPENTIN
     Indication: PRODUCT USED FOR UNKNOWN INDICATION
     Dosage: UNK, UNKNOWN FREQ.
     Route: 065
  3. ASPIRIN. [Concomitant]
     Active Substance: ASPIRIN
     Indication: PRODUCT USED FOR UNKNOWN INDICATION
     Dosage: UNK, UNKNOWN FREQ.
     Route: 065

REACTIONS (30)
  - Asthenia [Not Recovered/Not Resolved]
  - Feeling of despair [Unknown]
  - Memory impairment [Not Recovered/Not Resolved]
  - Emotional disorder [Not Recovered/Not Resolved]
  - Apathy [Unknown]
  - Headache [Recovered/Resolved]
  - Insomnia [Unknown]
  - Musculoskeletal pain [Unknown]
  - Nausea [Unknown]
  - Nausea [Unknown]
  - Amnesia [Unknown]
  - Dementia [Not Recovered/Not Resolved]
  - Urinary straining [Unknown]
  - Aphasia [Unknown]
  - Arthralgia [Not Recovered/Not Resolved]
  - Constipation [Unknown]
  - Headache [Recovered/Resolved]
  - Fatigue [Unknown]
  - Product taste abnormal [Unknown]
  - Visual acuity reduced [Not Recovered/Not Resolved]
  - Anaemia [Not Recovered/Not Resolved]
  - Headache [Unknown]
  - Hot flush [Unknown]
  - Hot flush [Unknown]
  - Pigmentation disorder [Recovered/Resolved]
  - Pain in extremity [Recovered/Resolved]
  - Memory impairment [Unknown]
  - Asthenia [Unknown]
  - Headache [Unknown]
  - Fall [Unknown]

NARRATIVE: CASE EVENT DATE: 201608
